FAERS Safety Report 19466507 (Version 2)
Quarter: 2025Q3

REPORT INFORMATION
  Report Type: Report from Study
  Country: EU (occurrence: EU)
  Receive Date: 20210628
  Receipt Date: 20250701
  Transmission Date: 20251020
  Serious: Yes (Other)
  Sender: AUROBINDO
  Company Number: EU-MYLANLABS-2021M1034817

PATIENT

DRUGS (1)
  1. EFAVIRENZ [Suspect]
     Active Substance: EFAVIRENZ
     Indication: Antiretroviral therapy
     Route: 065

REACTIONS (1)
  - Thrombosis [Unknown]
